FAERS Safety Report 22270010 (Version 2)
Quarter: 2023Q2

REPORT INFORMATION
  Report Type: Spontaneous
  Country: US (occurrence: US)
  Receive Date: 20230501
  Receipt Date: 20230519
  Transmission Date: 20230722
  Serious: Yes (Other)
  Sender: FDA-Public Use
  Company Number: US-BAYER-2023A055573

PATIENT
  Age: 41 Year
  Sex: Male

DRUGS (1)
  1. KERENDIA [Suspect]
     Active Substance: FINERENONE
     Dosage: UNK
     Dates: start: 202210, end: 202212

REACTIONS (12)
  - Glomerular filtration rate decreased [None]
  - Blood creatine increased [None]
  - Renal impairment [None]
  - Cardiac disorder [None]
  - Oedema [None]
  - Off label use [None]
  - Headache [None]
  - Nausea [None]
  - Dizziness [None]
  - Fatigue [None]
  - Blood pressure increased [None]
  - Product use issue [None]

NARRATIVE: CASE EVENT DATE: 20221101
